FAERS Safety Report 9629986 (Version 1)
Quarter: 2013Q4

REPORT INFORMATION
  Report Type: Spontaneous
  Country: US (occurrence: US)
  Receive Date: 20131017
  Receipt Date: 20131017
  Transmission Date: 20140711
  Serious: Yes (Hospitalization, Other)
  Sender: FDA-Public Use
  Company Number: US-UCBSA-099974

PATIENT
  Sex: Female
  Weight: 89.35 kg

DRUGS (11)
  1. VIMPAT [Suspect]
     Dosage: 50 MG
     Dates: start: 201205
  2. VIMPAT [Suspect]
     Dosage: 100MG
  3. VIMPAT [Suspect]
     Dosage: 150MG
     Dates: end: 201305
  4. VIMPAT [Suspect]
     Dosage: 100MG
     Dates: start: 2013, end: 2013
  5. VIMPAT [Suspect]
     Dosage: 50MG
     Dates: start: 2013, end: 2013
  6. GENERIC KEPPRA [Concomitant]
     Dates: start: 2011
  7. ZONAGRAN [Concomitant]
     Dosage: UNSPECIFIED DOSE
  8. CLONOZAPAN [Concomitant]
     Indication: ANXIETY
     Dosage: 2MG
  9. PROTONIX [Concomitant]
     Dosage: UNSPECIFIED DOSE - FOR 2 WEEKS
  10. CYMBALTA [Concomitant]
     Indication: DEPRESSION
  11. PROSAC [Concomitant]
     Indication: DEPRESSION

REACTIONS (11)
  - Amnesia [Unknown]
  - Convulsion [Unknown]
  - Pseudomeningocele [Recovered/Resolved]
  - Brain oedema [Unknown]
  - Gastroenteritis norovirus [Recovering/Resolving]
  - Headache [Unknown]
  - Fatigue [Unknown]
  - Dizziness [Unknown]
  - Electrolyte imbalance [Recovered/Resolved]
  - Asthenia [Recovered/Resolved]
  - Hiatus hernia [Not Recovered/Not Resolved]
